FAERS Safety Report 4401973-3 (Version None)
Quarter: 2004Q3

REPORT INFORMATION
  Report Type: 
  Country: None (occurrence: None)
  Receive Date: 20040714
  Receipt Date: 20040701
  Transmission Date: 20050211
  Serious: Yes (Other)
  Sender: FDA-Public Use
  Company Number: US_030292362

PATIENT
  Age: 10 Year
  Sex: Male
  Weight: 36 kg

DRUGS (1)
  1. STRATTERA [Suspect]
     Indication: IMPULSIVE BEHAVIOUR
     Dosage: 40 MG/1 DAY
     Dates: start: 20030129

REACTIONS (4)
  - ABNORMAL BEHAVIOUR [None]
  - ERYTHEMA [None]
  - FEELING HOT [None]
  - JAUNDICE [None]
